FAERS Safety Report 10020697 (Version 2)
Quarter: 2014Q3

REPORT INFORMATION
  Report Type: Spontaneous
  Country: US (occurrence: None)
  Receive Date: 20131126
  Receipt Date: 20140820
  Transmission Date: 20150326
  Serious: Yes (Life-Threatening, Hospitalization, Other)
  Sender: FDA-Public Use
  Company Number: ADR-2013-01969

PATIENT
  Age: 38 Year
  Sex: Female

DRUGS (27)
  1. BENZOCAINE. [Concomitant]
     Active Substance: BENZOCAINE
  2. LORATIDINE [Concomitant]
     Active Substance: LORATADINE
  3. COMPOUNDED BACLOFEN INTRATHECAL [Suspect]
     Active Substance: BACLOFEN
     Indication: MUSCLE SPASTICITY
  4. ALBUTEROL. [Concomitant]
     Active Substance: ALBUTEROL
  5. BACITRACIN. [Concomitant]
     Active Substance: BACITRACIN
  6. SIMETHICONE [Concomitant]
     Active Substance: DIMETHICONE\SILICON DIOXIDE\SIMETHICONE
  7. SODIUM CHLORIDE (SALINE NASAL) [Concomitant]
  8. ACEDTAMINOPHEN -CODEINE [Concomitant]
  9. ERGOCALCIFEROL. [Concomitant]
     Active Substance: ERGOCALCIFEROL
  10. SODIUM PHOSPHATE [Concomitant]
     Active Substance: SODIUM PHOSPHATE
  11. FLUTICASONE PROPIONTE [Concomitant]
  12. POLY ETHYLENE GLYCOL [Concomitant]
  13. SENNOSIDE [Concomitant]
     Active Substance: SENNOSIDES
  14. MENTHOL/CARMPHOR/PHENOL [Concomitant]
  15. ORAL ELECTROLYTES [Concomitant]
  16. PROMETHAZINE [Concomitant]
     Active Substance: PROMETHAZINE\PROMETHAZINE HYDROCHLORIDE
  17. ACETAMINOPHEN. [Concomitant]
     Active Substance: ACETAMINOPHEN
  18. CALCIUM CARBONATE. [Concomitant]
     Active Substance: CALCIUM CARBONATE
  19. HYDROCODONE -ACETAMINOPHEN [Concomitant]
  20. LISINOPRIL. [Concomitant]
     Active Substance: LISINOPRIL
  21. BISACODYL. [Concomitant]
     Active Substance: BISACODYL
  22. GUAIFENESIN. [Concomitant]
     Active Substance: GUAIFENESIN
  23. IBUPROFEN. [Concomitant]
     Active Substance: IBUPROFEN
  24. MAGNESIUM HYDROXIDE. [Concomitant]
     Active Substance: MAGNESIUM HYDROXIDE
  25. NUTRITIONAL SUPPLEMENT [Concomitant]
     Active Substance: DIETARY SUPPLEMENT
  26. MULTIVITS W MIN-FERROUS [Concomitant]
  27. SODIUM CHLORIDE (OCEAN) [Concomitant]

REACTIONS (36)
  - Asthenia [None]
  - Immobile [None]
  - Oral candidiasis [None]
  - Hypertonia [None]
  - Atelectasis [None]
  - Pneumothorax [None]
  - Bronchial secretion retention [None]
  - Bronchial obstruction [None]
  - Device physical property issue [None]
  - Ureteric obstruction [None]
  - Calculus ureteric [None]
  - Constipation [None]
  - Underdose [None]
  - Sepsis [None]
  - Systemic inflammatory response syndrome [None]
  - Anaemia [None]
  - Acute respiratory failure [None]
  - Device power source issue [None]
  - Pneumonia aspiration [None]
  - Renal atrophy [None]
  - Incorrect dose administered by device [None]
  - Device malfunction [None]
  - Pneumonia [None]
  - Soft tissue injury [None]
  - Encopresis [None]
  - Drug withdrawal syndrome [None]
  - Pruritus [None]
  - Haemoglobin decreased [None]
  - Myositis [None]
  - Pulmonary oedema [None]
  - Respiratory distress [None]
  - Haematoma [None]
  - Pneumonia pseudomonal [None]
  - Catheter site haematoma [None]
  - Pleural effusion [None]
  - Altered state of consciousness [None]
